FAERS Safety Report 5813931-2 (Version None)
Quarter: 2008Q3

REPORT INFORMATION
  Report Type: 
  Country: None (occurrence: None)
  Receive Date: 20080717
  Receipt Date: 20080623
  Transmission Date: 20090109
  Serious: Yes (Hospitalization, Other)
  Sender: FDA-Public Use
  Company Number: US-PFIZER INC-2008057524

PATIENT
  Sex: Female
  Weight: 99 kg

DRUGS (4)
  1. SOLU-MEDROL [Suspect]
     Indication: PREMEDICATION
  2. REMICADE [Suspect]
     Indication: CROHN'S DISEASE
     Dosage: DAILY DOSE:5MG/KG
     Route: 042
  3. REMICADE [Suspect]
  4. IMURAN [Suspect]
     Indication: CROHN'S DISEASE

REACTIONS (6)
  - APPENDICITIS [None]
  - CROHN'S DISEASE [None]
  - ECZEMA [None]
  - PHOTOSENSITIVITY REACTION [None]
  - SMALL INTESTINAL OBSTRUCTION [None]
  - WEIGHT DECREASED [None]
